FAERS Safety Report 7544407-2 (Version None)
Quarter: 2011Q2

REPORT INFORMATION
  Report Type: 
  Country: None (occurrence: None)
  Receive Date: 20110613
  Receipt Date: 20080527
  Transmission Date: 20111010
  Serious: Yes (Other)
  Sender: FDA-Public Use
  Company Number: PHHY2008CA06637

PATIENT
  Sex: Female
  Weight: 133 kg

DRUGS (1)
  1. CLOZAPINE [Suspect]
     Dosage: 275 MG, UNK
     Route: 048
     Dates: start: 20020403

REACTIONS (2)
  - DRUG EXPOSURE DURING PREGNANCY [None]
  - ABORTION SPONTANEOUS [None]
